FAERS Safety Report 8337435-0 (Version None)
Quarter: 2012Q1

REPORT INFORMATION
  Report Type: 
  Country: None (occurrence: None)
  Receive Date: 20120329
  Receipt Date: 20100727
  Transmission Date: 20120608
  Serious: Yes (Other)
  Sender: FDA-Public Use
  Company Number: PHHY2010US49299

PATIENT
  Age: 77 Year
  Sex: Female

DRUGS (5)
  1. AMBIEN [Suspect]
  2. EXELON [Suspect]
     Dosage: 1 DF, QD, TRANSDERMAL
     Route: 062
  3. NAMENDA (MEMANTINE HYDROCHLROIDE) [Concomitant]
  4. PAXIL [Concomitant]
  5. VALIUM [Concomitant]

REACTIONS (2)
  - NIGHTMARE [None]
  - DEPRESSION [None]
